FAERS Safety Report 9214943 (Version 1)
Quarter: 2013Q2

REPORT INFORMATION
  Report Type: Report from Study
  Country: ES (occurrence: ES)
  Receive Date: 20130405
  Receipt Date: 20130405
  Transmission Date: 20140414
  Serious: Yes (Hospitalization)
  Sender: FDA-Public Use
  Company Number: ES-BAYER-2013-042881

PATIENT
  Age: 83 Year
  Sex: Female

DRUGS (3)
  1. ADIRO [Suspect]
     Dosage: GIVEN INITIAL DATE IS ESTIMATED
     Route: 048
     Dates: start: 2012
  2. CELECOXIB [Suspect]
     Indication: FIBROMYALGIA
     Dosage: 0-1-0
     Route: 048
     Dates: start: 2012, end: 20130312
  3. DEXKETOPROFEN [Suspect]
     Dosage: 1-0-1
     Route: 048
     Dates: start: 2012, end: 20130312

REACTIONS (3)
  - Iron deficiency anaemia [Recovering/Resolving]
  - Cardiac failure [Recovering/Resolving]
  - Melaena [Recovering/Resolving]
